FAERS Safety Report 6043017-6 (Version None)
Quarter: 2009Q1

REPORT INFORMATION
  Report Type: 
  Country: None (occurrence: None)
  Receive Date: 20090119
  Receipt Date: 20090108
  Transmission Date: 20090719
  Serious: Yes (Other)
  Sender: FDA-Public Use
  Company Number: BR-JNJFOC-20090101727

PATIENT
  Age: 85 Year
  Sex: Female

DRUGS (1)
  1. ULTRACET [Suspect]
     Indication: BACK PAIN
     Dosage: ACETAMINOPHEN 325MG/TRAMADOL HYDROCHLORIDE 37.5MG
     Route: 048

REACTIONS (1)
  - HEART RATE DECREASED [None]
